FAERS Safety Report 23526150 (Version 2)
Quarter: 2024Q1

REPORT INFORMATION
  Report Type: Spontaneous
  Country: US (occurrence: US)
  Receive Date: 20240215
  Receipt Date: 20240222
  Transmission Date: 20240410
  Serious: Yes (Other)
  Sender: FDA-Public Use
  Company Number: US-BRISTOL-MYERS SQUIBB COMPANY-2024-023941

PATIENT
  Age: 69 Year
  Sex: Female
  Weight: 82 kg

DRUGS (14)
  1. REVLIMID [Suspect]
     Active Substance: LENALIDOMIDE
     Indication: Plasma cell myeloma
     Route: 048
     Dates: start: 20230419, end: 20240213
  2. ASPIRIN [Concomitant]
     Active Substance: ASPIRIN
     Indication: Product used for unknown indication
  3. ALPRAZOLAM [Concomitant]
     Active Substance: ALPRAZOLAM
     Indication: Product used for unknown indication
  4. ASPIRIN [Concomitant]
     Active Substance: ASPIRIN
     Indication: Product used for unknown indication
     Dosage: ORANGE TB 3X36
  5. CALCIUM + MAGNESIUM [Concomitant]
     Indication: Product used for unknown indication
  6. CYCLOBENZAPRINE [Concomitant]
     Active Substance: CYCLOBENZAPRINE
     Indication: Product used for unknown indication
  7. ESOMEPRAZOLE MAGNESIUM [Concomitant]
     Active Substance: ESOMEPRAZOLE\ESOMEPRAZOLE MAGNESIUM\ESOMEPRAZOLE MAGNESIUM DIHYDRATE
     Indication: Product used for unknown indication
  8. FLAX SEEDS [Concomitant]
     Active Substance: FLAX SEEDS
     Indication: Product used for unknown indication
  9. MULTIVITAMIN [ASCORBIC ACID;CALCIUM PANTOTHENATE;CYANOCOBALAMIN;NICOTI [Concomitant]
     Indication: Product used for unknown indication
  10. CARAFATE [Concomitant]
     Active Substance: SUCRALFATE
     Indication: Product used for unknown indication
  11. SUMATRIPTAN [Concomitant]
     Active Substance: SUMATRIPTAN
     Indication: Product used for unknown indication
  12. ZOLPIDEM [Concomitant]
     Active Substance: ZOLPIDEM TARTRATE
     Indication: Product used for unknown indication
  13. DARZALEX FASPRO [Concomitant]
     Active Substance: DARATUMUMAB\HYALURONIDASE-FIHJ
     Indication: Product used for unknown indication
  14. DEXAMETHASONE [Concomitant]
     Active Substance: DEXAMETHASONE
     Indication: Product used for unknown indication

REACTIONS (1)
  - Transient ischaemic attack [Unknown]
